FAERS Safety Report 10239085 (Version 1)
Quarter: 2014Q2

REPORT INFORMATION
  Report Type: Spontaneous
  Country: GB (occurrence: GB)
  Receive Date: 20140616
  Receipt Date: 20140616
  Transmission Date: 20141212
  Serious: Yes (Life-Threatening)
  Sender: FDA-Public Use
  Company Number: GB-PFIZER INC-2014161243

PATIENT
  Age: 69 Year
  Sex: Male

DRUGS (8)
  1. CISPLATIN [Suspect]
     Indication: GASTRIC CANCER
     Dosage: LAST DOSE PRIOR TO SAE: 115 MG, 03JUL2013
     Route: 042
     Dates: start: 20130521
  2. EPIRUBICIN HCL [Suspect]
     Indication: GASTRIC CANCER
     Dosage: LAST DOSE PRIOR TO SAE: 95 MG, 03JUL2013
     Route: 042
     Dates: start: 20130521
  3. AVASTIN [Suspect]
     Indication: GASTRIC CANCER
     Dosage: LAST DOSE PRIOR TO SAE: 600 MG, 03JUL2013
     Route: 042
     Dates: start: 20130521
  4. XELODA [Suspect]
     Indication: GASTRIC CANCER
     Dosage: LAST DOSE PRIOR TO SAE WAS 600 MG ON 03JUL2013
     Route: 048
     Dates: start: 20130521
  5. XELODA [Suspect]
     Dosage: UNK
  6. AMLODIPINE [Concomitant]
     Dosage: UNK
     Route: 048
  7. BENDROFLUAZIDE [Concomitant]
     Dosage: UNK
     Route: 048
  8. SIMVASTATIN [Concomitant]
     Dosage: UNK
     Route: 048

REACTIONS (1)
  - Hypokalaemia [Recovered/Resolved]
